FAERS Safety Report 14281486 (Version 2)
Quarter: 2020Q2

REPORT INFORMATION
  Report Type: Spontaneous
  Country: GB (occurrence: GB)
  Receive Date: 20171213
  Receipt Date: 20200605
  Transmission Date: 20200713
  Serious: Yes (Other)
  Sender: FDA-Public Use
  Company Number: GB-ALIMERA SCIENCES LIMITED-GB-FL-2017-003720

PATIENT
  Age: 65 Year
  Sex: Female

DRUGS (2)
  1. ILUVIEN [Suspect]
     Active Substance: FLUOCINOLONE ACETONIDE
     Indication: MACULOPATHY
     Dosage: 0.25 ?G, QD, RIGHT EYE
     Route: 031
  2. RANIBIZUMAB. [Concomitant]
     Active Substance: RANIBIZUMAB
     Indication: DIABETIC RETINAL OEDEMA
     Dosage: BOTH EYES

REACTIONS (3)
  - Vitrectomy [Recovered/Resolved]
  - Rhegmatogenous retinal detachment [Unknown]
  - Complication of device removal [Unknown]
